FAERS Safety Report 7944527-4 (Version None)
Quarter: 2011Q4

REPORT INFORMATION
  Report Type: 
  Country: None (occurrence: None)
  Receive Date: 20111114
  Receipt Date: 20110810
  Transmission Date: 20120403
  Serious: No
  Sender: FDA-Public Use
  Company Number: 1000022447

PATIENT
  Age: 74 Year
  Sex: Male

DRUGS (5)
  1. LISINOPRIL [Concomitant]
  2. SAVELLA [Suspect]
     Indication: NEUROPATHY PERIPHERAL
     Dosage: 25 MG BID (25 MG, 2 IN 1 D), ORAL
     Route: 048
     Dates: start: 20110719, end: 20110721
  3. FISH OIL (FISH OIL) (FISH OIL) [Concomitant]
  4. SAVELLA [Suspect]
     Indication: NEUROPATHY PERIPHERAL
     Dosage: 12.5 MG (12.5 MG, 1 IN 1 D), ORAL
     Route: 048
     Dates: start: 20110716, end: 20110716
  5. ASPIRIN [Concomitant]

REACTIONS (4)
  - TESTICULAR PAIN [None]
  - DYSURIA [None]
  - EJACULATION DISORDER [None]
  - GASTROINTESTINAL DISORDER [None]
